FAERS Safety Report 8457727-4 (Version None)
Quarter: 2012Q2

REPORT INFORMATION
  Report Type: 
  Country: None (occurrence: None)
  Receive Date: 20120618
  Receipt Date: 20120618
  Transmission Date: 20120825
  Serious: Yes (Other)
  Sender: FDA-Public Use
  Company Number: None

PATIENT
  Age: 55 Year
  Sex: Female
  Weight: 90.7194 kg

DRUGS (1)
  1. ZICAM NO-DRIP NASAL GEL 0.05% OXYMETAZOLINE ZICAM [Suspect]
     Indication: NASOPHARYNGITIS
     Dosage: ONE SQUEEZE TWO TIMES A DAY NASAL
     Route: 045
     Dates: start: 20120613, end: 20120615

REACTIONS (2)
  - ANOSMIA [None]
  - MEMORY IMPAIRMENT [None]
